FAERS Safety Report 10190550 (Version 1)
Quarter: 2014Q2

REPORT INFORMATION
  Report Type: Spontaneous
  Country: US (occurrence: US)
  Receive Date: 20140523
  Receipt Date: 20140523
  Transmission Date: 20141212
  Serious: No
  Sender: FDA-Public Use
  Company Number: US-B.I. PHARMACEUTICALS,INC./RIDGEFIELD-2014-BI-21050BP

PATIENT
  Sex: Female
  Weight: 75 kg

DRUGS (7)
  1. SPIRIVA [Suspect]
     Indication: BRONCHITIS CHRONIC
     Dosage: 18 MCG
     Route: 055
     Dates: start: 2004
  2. NEURONTIN [Concomitant]
     Indication: NEURALGIA
     Dosage: 600 MG
     Route: 048
  3. PRILOSEC [Concomitant]
     Indication: GASTROOESOPHAGEAL REFLUX DISEASE
     Dosage: STRENGTH:40 MG
     Route: 065
  4. INDERAL [Concomitant]
     Indication: HYPERTENSION
     Dosage: STRENGTH: 120 MG
     Route: 065
  5. KLONOPIN [Concomitant]
     Dosage: 1 MG
     Route: 065
  6. HCTZ/TRIAMTERENE [Concomitant]
     Indication: HYPERTENSION
     Dosage: DOSE PER APPLICATION AND STRENGTH: 37/25 MG
     Route: 065
  7. LORTAB [Concomitant]
     Indication: BACK PAIN
     Dosage: 10 MG
     Route: 065

REACTIONS (1)
  - Cataract [Not Recovered/Not Resolved]
